FAERS Safety Report 7392782-4 (Version None)
Quarter: 2011Q2

REPORT INFORMATION
  Report Type: 
  Country: None (occurrence: None)
  Receive Date: 20110404
  Receipt Date: 20110322
  Transmission Date: 20111010
  Serious: Yes (Other)
  Sender: FDA-Public Use
  Company Number: PHHY2011US24793

PATIENT

DRUGS (4)
  1. RECLAST [Suspect]
     Indication: OSTEOPOROSIS
     Dosage: 5 MG, ONCE A YEAR
     Route: 042
     Dates: start: 20110203, end: 20110203
  2. SKELAXIN [Concomitant]
     Dosage: 800 MG, TID
  3. SIMVASTATIN [Concomitant]
     Dosage: UNK
  4. ATROVENT [Concomitant]
     Dosage: UNK

REACTIONS (7)
  - CELLULITIS [None]
  - SWELLING [None]
  - PAIN [None]
  - ERYTHEMA [None]
  - INFLUENZA LIKE ILLNESS [None]
  - NAUSEA [None]
  - BACK PAIN [None]
